FAERS Safety Report 8217297-2 (Version None)
Quarter: 2012Q1

REPORT INFORMATION
  Report Type: 
  Country: None (occurrence: None)
  Receive Date: 20120319
  Receipt Date: 20120316
  Transmission Date: 20120608
  Serious: No
  Sender: FDA-Public Use
  Company Number: US-PFIZER INC-2012070095

PATIENT
  Sex: Female
  Weight: 79.365 kg

DRUGS (8)
  1. EVISTA [Concomitant]
     Indication: BONE DISORDER
     Dosage: UNK
  2. CHANTIX [Suspect]
     Indication: SMOKING CESSATION THERAPY
     Dosage: 0.5 MG, 1X/DAY
     Route: 048
  3. FEXOFENADINE [Concomitant]
     Indication: HYPERSENSITIVITY
     Dosage: UNK
  4. CHANTIX [Suspect]
     Dosage: UNK
     Route: 048
  5. RANITIDINE [Concomitant]
     Indication: ULCER
     Dosage: UNK
  6. OXYBUTYNIN [Concomitant]
     Dosage: UNK
  7. LOSARTAN [Concomitant]
     Indication: HYPERTENSION
     Dosage: UNK
  8. CHANTIX [Suspect]
     Dosage: 0.5 MG, 1X/DAY
     Route: 048
     Dates: start: 20120316

REACTIONS (3)
  - BLOOD CHOLESTEROL INCREASED [None]
  - ABNORMAL DREAMS [None]
  - VOMITING [None]
